FAERS Safety Report 8462257-X (Version None)
Quarter: 2012Q2

REPORT INFORMATION
  Report Type: 
  Country: None (occurrence: None)
  Receive Date: 20120625
  Receipt Date: 20120616
  Transmission Date: 20120825
  Serious: Yes (Other)
  Sender: FDA-Public Use
  Company Number: IT-ASTRAZENECA-2012SE40627

PATIENT
  Age: 87 Year
  Sex: Male

DRUGS (5)
  1. OMEPRAZOLE [Concomitant]
     Route: 048
  2. ZESTORETIC [Suspect]
     Indication: ESSENTIAL HYPERTENSION
     Route: 048
     Dates: start: 20050601, end: 20120222
  3. JUMEX (SELEGILINE HYDROCHLORIDE) [Concomitant]
     Route: 048
  4. SINEMET [Concomitant]
     Dosage: 200 MG + 54 MG
  5. PLAVIX [Concomitant]
     Route: 048

REACTIONS (2)
  - DRUG ERUPTION [None]
  - ANGIOEDEMA [None]
